FAERS Safety Report 7999060-0 (Version None)
Quarter: 2011Q4

REPORT INFORMATION
  Report Type: 
  Country: None (occurrence: None)
  Receive Date: 20111221
  Receipt Date: 20111215
  Transmission Date: 20120403
  Serious: Yes (Hospitalization)
  Sender: FDA-Public Use
  Company Number: PHHO2011DE018804

PATIENT
  Sex: Male
  Weight: 60.7 kg

DRUGS (5)
  1. AMPHOTERICIN B [Concomitant]
     Indication: PROPHYLAXIS
     Dosage: 4 ML, UNK
     Dates: start: 20110901
  2. AFINITOR [Suspect]
     Indication: ACUTE MYELOID LEUKAEMIA
     Dosage: 25 MG, UNK
     Dates: start: 20111005, end: 20111107
  3. LEVOFLOXACIN [Concomitant]
     Indication: PROPHYLAXIS
     Dosage: 500 MG, UNK
     Dates: start: 20110204, end: 20111108
  4. TASIGNA [Suspect]
     Indication: ACUTE MYELOID LEUKAEMIA
     Dosage: 800 MG, UNK
     Route: 048
     Dates: start: 20110928, end: 20111106
  5. TASIGNA [Suspect]
     Dosage: 400 MG, UNK
     Route: 048
     Dates: start: 20111107, end: 20111108

REACTIONS (2)
  - DRUG INEFFECTIVE [None]
  - FEBRILE NEUTROPENIA [None]
